FAERS Safety Report 20177595 (Version 1)
Quarter: 2021Q4

REPORT INFORMATION
  Report Type: Spontaneous
  Country: FR (occurrence: FR)
  Receive Date: 20211213
  Receipt Date: 20211213
  Transmission Date: 20220303
  Serious: Yes (Hospitalization, Other)
  Sender: FDA-Public Use
  Company Number: None

PATIENT
  Age: 71 Year
  Sex: Male
  Weight: 99.5 kg

DRUGS (10)
  1. COMIRNATY [Suspect]
     Active Substance: TOZINAMERAN
     Indication: COVID-19 immunisation
     Dosage: DOSE 3 (BOOSTER), SINGLE
     Route: 030
     Dates: start: 20211103, end: 20211103
  2. IRINOTECAN HYDROCHLORIDE [Suspect]
     Active Substance: IRINOTECAN HYDROCHLORIDE
     Dosage: UNK
     Route: 042
     Dates: start: 20211110
  3. AVASTIN [Suspect]
     Active Substance: BEVACIZUMAB
     Indication: Glioblastoma
     Dosage: UNK
     Route: 042
     Dates: start: 20211110
  4. RAMIPRIL [Concomitant]
     Active Substance: RAMIPRIL
     Dosage: 1-0-0
  5. SIMVASTATIN [Concomitant]
     Active Substance: SIMVASTATIN
     Dosage: 0-0-1
  6. PAROXETINE [Concomitant]
     Active Substance: PAROXETINE
     Dosage: 1-0-0
  7. BROMAZEPAM [Concomitant]
     Active Substance: BROMAZEPAM
     Dosage: 0-0-1/4
  8. PREDNISONE [Concomitant]
     Active Substance: PREDNISONE
     Dosage: 1-0-0
  9. ESOMEPRAZOLE MAGNESIUM [Concomitant]
     Active Substance: ESOMEPRAZOLE MAGNESIUM
     Dosage: 0-0-1
  10. ONDANSETRON [Concomitant]
     Active Substance: ONDANSETRON
     Dosage: IF NECESSARY

REACTIONS (6)
  - Immunisation [Unknown]
  - Cor pulmonale acute [Recovering/Resolving]
  - Pulmonary embolism [Recovering/Resolving]
  - Pulmonary arterial hypertension [Unknown]
  - Dyspnoea [Unknown]
  - Myalgia [Unknown]

NARRATIVE: CASE EVENT DATE: 20211110
